FAERS Safety Report 9900071 (Version 2)
Quarter: 2014Q1

REPORT INFORMATION
  Report Type: Other
  Country: FR (occurrence: FR)
  Receive Date: 20140214
  Receipt Date: 20140228
  Transmission Date: 20141002
  Serious: Yes (Death, Hospitalization, Other)
  Sender: FDA-Public Use
  Company Number: FR-CUBIST PHARMACEUTICAL, INC.-2014CBST000171

PATIENT
  Sex: 0

DRUGS (17)
  1. CUBICIN [Suspect]
     Indication: PRODUCT USED FOR UNKNOWN INDICATION
     Dosage: 420 MG, QD
     Route: 042
     Dates: start: 20140103, end: 20140107
  2. CICLOSPORIN [Suspect]
     Indication: PRODUCT USED FOR UNKNOWN INDICATION
     Dosage: 220 MG, QD
     Route: 042
     Dates: start: 20131214, end: 20140105
  3. CEFEPIME [Suspect]
     Indication: BLOOD CULTURE POSITIVE
     Dosage: 2 G, TID
     Route: 042
     Dates: start: 20131224, end: 20131229
  4. VANCOMYCIN [Suspect]
     Indication: BLOOD CULTURE POSITIVE
     Dosage: 5 DF, QD
     Route: 042
     Dates: start: 20131224, end: 20140102
  5. HEPARINE SODIUM [Suspect]
     Indication: PRODUCT USED FOR UNKNOWN INDICATION
     Dosage: 7000 IU, QD
     Route: 058
     Dates: start: 20131224, end: 20140108
  6. AMIKACIN [Suspect]
     Indication: BLOOD CULTURE POSITIVE
     Dosage: 3.5 DF, QD
     Route: 065
     Dates: start: 20131226, end: 20131230
  7. TAZOCILLINE [Suspect]
     Indication: PRODUCT USED FOR UNKNOWN INDICATION
     Dosage: 1 DF, QID
     Route: 065
     Dates: start: 20131230, end: 20140103
  8. ZELITREX [Suspect]
     Indication: PRODUCT USED FOR UNKNOWN INDICATION
     Dosage: 2 DF, TID
     Route: 065
     Dates: start: 20131203, end: 20140112
  9. NOXAFIL [Suspect]
     Indication: PRODUCT USED FOR UNKNOWN INDICATION
     Dosage: 300 MG, TID
     Route: 048
     Dates: start: 20131205, end: 20140109
  10. INEXIUM /01479302/ [Suspect]
     Indication: PRODUCT USED FOR UNKNOWN INDICATION
     Dosage: 20 MG, QD
     Route: 048
     Dates: start: 20131205, end: 20140111
  11. FLAGYL                             /00012502/ [Concomitant]
     Indication: PRODUCT USED FOR UNKNOWN INDICATION
     Dosage: UNK, UNK, UNK
     Route: 065
     Dates: start: 20140103, end: 20140103
  12. SOLUMEDROL [Concomitant]
     Indication: PRODUCT USED FOR UNKNOWN INDICATION
     Dosage: UNK UNK, UNK
     Route: 065
     Dates: start: 20131214, end: 20140102
  13. MOTILIUM                           /00498201/ [Concomitant]
     Indication: PRODUCT USED FOR UNKNOWN INDICATION
     Dosage: UNK UNK, UNK
     Route: 065
     Dates: start: 20131218, end: 20131224
  14. ATGAM [Concomitant]
     Indication: PRODUCT USED FOR UNKNOWN INDICATION
     Dosage: UNK, UNK, UNK
     Route: 065
     Dates: start: 20131214, end: 20131217
  15. TIENAM [Concomitant]
     Indication: PRODUCT USED FOR UNKNOWN INDICATION
     Dosage: UNK, UNK, UNK
     Route: 065
     Dates: start: 20131206, end: 20131220
  16. OROKEN [Concomitant]
     Indication: PRODUCT USED FOR UNKNOWN INDICATION
     Dosage: UNK UNK, UNK
     Route: 065
     Dates: start: 201311
  17. OFLOCET                            /00731801/ [Concomitant]
     Indication: PRODUCT USED FOR UNKNOWN INDICATION
     Dosage: UNK UNK, UNK
     Route: 065
     Dates: start: 201312, end: 20131220

REACTIONS (3)
  - Skin mass [Not Recovered/Not Resolved]
  - Generalised oedema [Not Recovered/Not Resolved]
  - Myalgia [Not Recovered/Not Resolved]
